FAERS Safety Report 7568636-7 (Version None)
Quarter: 2011Q2

REPORT INFORMATION
  Report Type: 
  Country: None (occurrence: None)
  Receive Date: 20110623
  Receipt Date: 20110614
  Transmission Date: 20111010
  Serious: Yes (Hospitalization)
  Sender: FDA-Public Use
  Company Number: US-ASTRAZENECA-2008UW28069

PATIENT
  Sex: Female

DRUGS (6)
  1. FASLODEX [Suspect]
  2. ARIMIDEX [Suspect]
     Indication: BREAST CANCER
     Route: 048
  3. FASLODEX [Suspect]
  4. CYMBALTA [Concomitant]
  5. FASLODEX [Suspect]
     Indication: BREAST CANCER
     Dates: start: 20070101
  6. FASLODEX [Suspect]
     Indication: BREAST CANCER METASTATIC
     Dates: start: 20070101

REACTIONS (8)
  - ADRENAL DISORDER [None]
  - OSTEOPOROSIS [None]
  - BONE PAIN [None]
  - NECK EXPLORATION [None]
  - PREMATURE AGEING [None]
  - NECK PAIN [None]
  - DRUG INEFFECTIVE [None]
  - METASTASES TO SPINE [None]
